FAERS Safety Report 15550679 (Version 2)
Quarter: 2018Q4

REPORT INFORMATION
  Report Type: Spontaneous
  Country: CZ (occurrence: CZ)
  Receive Date: 20181025
  Receipt Date: 20181105
  Transmission Date: 20190205
  Serious: Yes (Death, Other)
  Sender: FDA-Public Use
  Company Number: CZ-TEVA-2018-CZ-967079

PATIENT
  Age: 36 Year
  Sex: Male

DRUGS (4)
  1. VINORELBINE [Suspect]
     Active Substance: VINORELBINE\VINORELBINE TARTRATE
     Indication: LUNG NEOPLASM MALIGNANT
     Route: 048
     Dates: start: 201702, end: 201704
  2. VINORELBINE [Suspect]
     Active Substance: VINORELBINE\VINORELBINE TARTRATE
     Dosage: MONOTHERAPY AFTER THE FINISH OF THE 6TH CYCLE
     Route: 048
  3. CARBOPLATIN. [Suspect]
     Active Substance: CARBOPLATIN
     Indication: LUNG NEOPLASM MALIGNANT
     Route: 042
     Dates: start: 201702, end: 201704
  4. DOCETAXEL. [Suspect]
     Active Substance: DOCETAXEL
     Dosage: IN THREE WEEK INTERVAL
     Route: 065

REACTIONS (8)
  - Death [Fatal]
  - Back pain [Unknown]
  - Disease progression [Unknown]
  - Subclavian vein thrombosis [Unknown]
  - Neutropenia [Unknown]
  - Superior vena cava syndrome [Unknown]
  - Swelling [Unknown]
  - Dysphagia [Unknown]

NARRATIVE: CASE EVENT DATE: 201709
